FAERS Safety Report 6192174-X (Version None)
Quarter: 2009Q2

REPORT INFORMATION
  Report Type: 
  Country: None (occurrence: None)
  Receive Date: 20090515
  Receipt Date: 20090513
  Transmission Date: 20091009
  Serious: Yes (Death, Other)
  Sender: FDA-Public Use
  Company Number: PHHY2009TW18247

PATIENT
  Sex: Male
  Weight: 59 kg

DRUGS (1)
  1. DIOVAN T30230++HY [Suspect]
     Indication: HYPERTENSION
     Dosage: 220 MG
     Route: 048
     Dates: start: 20090316

REACTIONS (2)
  - DEATH [None]
  - LOSS OF CONSCIOUSNESS [None]
